FAERS Safety Report 14167971 (Version 1)
Quarter: 2017Q4

REPORT INFORMATION
  Report Type: Report from Study
  Country: US (occurrence: US)
  Receive Date: 20171108
  Receipt Date: 20171108
  Transmission Date: 20180321
  Serious: No
  Sender: FDA-Public Use
  Company Number: US-AMGEN-USASL2017167168

PATIENT
  Age: 47 Year
  Sex: Female

DRUGS (1)
  1. ENBREL [Suspect]
     Active Substance: ETANERCEPT
     Indication: RHEUMATOID ARTHRITIS
     Dosage: 50 MG, QWK
     Route: 065
     Dates: end: 20171018

REACTIONS (4)
  - Rash papular [Unknown]
  - Sinusitis [Recovered/Resolved]
  - Cough [Recovered/Resolved]
  - Rash pruritic [Recovering/Resolving]

NARRATIVE: CASE EVENT DATE: 201710
